FAERS Safety Report 7942588 (Version 28)
Quarter: 2020Q2

REPORT INFORMATION
  Report Type: Report from Study
  Country: CA (occurrence: CA)
  Receive Date: 20110512
  Receipt Date: 20200624
  Transmission Date: 20200714
  Serious: Yes (Hospitalization, Other)
  Sender: FDA-Public Use
  Company Number: PHHY2010CA56380

PATIENT
  Age: 47 Year
  Sex: Female
  Weight: 145 kg

DRUGS (11)
  1. SANDOSTATIN LAR INJECTION NEEDLE (DEVICE) [Suspect]
     Active Substance: DEVICE
     Indication: PITUITARY TUMOUR
     Route: 065
  2. DILANTIN [Concomitant]
     Active Substance: PHENYTOIN
     Dosage: 100 MG, (3 CAPSULES DIE)
     Route: 048
  3. SANDOSTATIN LAR DEPOT [Suspect]
     Active Substance: OCTREOTIDE ACETATE
     Indication: PITUITARY TUMOUR
     Dosage: 30 MG, QMO (ONCE A MONTH)
     Route: 030
     Dates: start: 20000501
  4. SANDOSTATIN LAR DEPOT [Suspect]
     Active Substance: OCTREOTIDE ACETATE
     Dosage: 20 MG, QMO
     Route: 030
     Dates: start: 20000501
  5. SANDOSTATIN LAR DEPOT [Suspect]
     Active Substance: OCTREOTIDE ACETATE
     Dosage: 30 MG, QMO (ONCE A MONTH)
     Route: 030
  6. SANDOSTATIN LAR DEPOT [Suspect]
     Active Substance: OCTREOTIDE ACETATE
     Dosage: UNK
     Route: 030
     Dates: start: 20190305
  7. SANDOSTATIN LAR DEPOT [Suspect]
     Active Substance: OCTREOTIDE ACETATE
     Dosage: 30 MG, QMO
     Route: 065
  8. LAMOTRIGINE. [Concomitant]
     Active Substance: LAMOTRIGINE
     Indication: PRODUCT USED FOR UNKNOWN INDICATION
     Dosage: 1 DF, BID WITH 25 MG
     Route: 048
  9. SANDOSTATIN LAR DEPOT [Suspect]
     Active Substance: OCTREOTIDE ACETATE
     Dosage: 30 MG, QMO (ONCE A MONTH)
     Route: 030
  10. DILANTIN [Concomitant]
     Active Substance: PHENYTOIN
     Indication: PRODUCT USED FOR UNKNOWN INDICATION
     Dosage: 50 MG, QD
     Route: 048
  11. SANDOSTATIN LAR DEPOT [Suspect]
     Active Substance: OCTREOTIDE ACETATE
     Dosage: 20 MG, QMO
     Route: 030
     Dates: start: 20170217

REACTIONS (31)
  - Asthenia [Unknown]
  - Dizziness [Unknown]
  - Depressed mood [Unknown]
  - Influenza [Unknown]
  - Nasopharyngitis [Unknown]
  - Injection site swelling [Unknown]
  - Injection site bruising [Unknown]
  - Overweight [Unknown]
  - Abdominal pain [Recovered/Resolved]
  - Feeling abnormal [Unknown]
  - Musculoskeletal pain [Recovered/Resolved]
  - Joint swelling [Not Recovered/Not Resolved]
  - Syringe issue [Unknown]
  - Underdose [Unknown]
  - Electrolyte imbalance [Unknown]
  - Nephrolithiasis [Unknown]
  - Fall [Recovered/Resolved]
  - Lipoma [Unknown]
  - Blood sodium decreased [Unknown]
  - Blood pressure systolic increased [Unknown]
  - Abdominal pain lower [Unknown]
  - Diarrhoea [Unknown]
  - Exostosis [Unknown]
  - Needle issue [Unknown]
  - Limb discomfort [Unknown]
  - Cholelithiasis [Unknown]
  - Injection site haemorrhage [Unknown]
  - Weight loss poor [Unknown]
  - Contusion [Unknown]
  - Herpes zoster [Recovering/Resolving]
  - Vomiting [Unknown]

NARRATIVE: CASE EVENT DATE: 20100730
